FAERS Safety Report 17718222 (Version 6)
Quarter: 2020Q3

REPORT INFORMATION
  Report Type: Spontaneous
  Country: CA (occurrence: CA)
  Receive Date: 20200428
  Receipt Date: 20200803
  Transmission Date: 20201102
  Serious: Yes (Death, Hospitalization)
  Sender: FDA-Public Use
  Company Number: CA-PFIZER INC-2020133798

PATIENT
  Age: 59 Year
  Sex: Male
  Weight: 91.8 kg

DRUGS (11)
  1. CAPROL [BISOPROLOL FUMARATE] [Concomitant]
     Dosage: UNK
  2. DEXAMETHASONE. [Concomitant]
     Active Substance: DEXAMETHASONE
     Dosage: UNK
  3. ZIRABEV [Suspect]
     Active Substance: BEVACIZUMAB-BVZR
     Indication: GLIOBLASTOMA
     Dosage: 1300 MG, EVERY 3 WEEKS
     Route: 042
     Dates: start: 20200306
  4. ZIRABEV [Suspect]
     Active Substance: BEVACIZUMAB-BVZR
     Dosage: 1300 MG, EVERY 3 WEEKS
     Route: 042
     Dates: end: 20200306
  5. ZIRABEV [Suspect]
     Active Substance: BEVACIZUMAB-BVZR
     Dosage: 1300 MG, EVERY 3 WEEKS
     Route: 042
     Dates: end: 20200327
  6. ZIRABEV [Suspect]
     Active Substance: BEVACIZUMAB-BVZR
     Dosage: 1300 MG, EVERY 3 WEEKS
     Route: 042
     Dates: start: 20200327
  7. ZIRABEV [Suspect]
     Active Substance: BEVACIZUMAB-BVZR
     Dosage: 1300 MG, EVERY 3 WEEKS
     Route: 042
     Dates: start: 20200424
  8. TAGRISSO [Concomitant]
     Active Substance: OSIMERTINIB
     Dosage: UNK
  9. ATIVAN [Concomitant]
     Active Substance: LORAZEPAM
     Dosage: UNK
  10. ZIRABEV [Suspect]
     Active Substance: BEVACIZUMAB-BVZR
     Dosage: 1300 MG, EVERY 3 WEEKS
     Route: 042
     Dates: end: 20200424
  11. PANTOPRAZOLE [Concomitant]
     Active Substance: PANTOPRAZOLE
     Dosage: UNK

REACTIONS (16)
  - Rash [Recovered/Resolved]
  - Pneumonia [Recovered/Resolved]
  - Balance disorder [Unknown]
  - Fall [Unknown]
  - Off label use [Unknown]
  - Neoplasm progression [Fatal]
  - Rhinovirus infection [Unknown]
  - Hyponatraemia [Not Recovered/Not Resolved]
  - Asthenia [Unknown]
  - Confusional state [Unknown]
  - Vomiting [Unknown]
  - Dyspnoea [Recovered/Resolved]
  - Erythema [Recovered/Resolved]
  - Blood pressure increased [Unknown]
  - Product use issue [Unknown]
  - Dizziness [Unknown]

NARRATIVE: CASE EVENT DATE: 20200306
